FAERS Safety Report 18278165 (Version 1)
Quarter: 2020Q3

REPORT INFORMATION
  Report Type: Spontaneous
  Country: US (occurrence: US)
  Receive Date: 20200917
  Receipt Date: 20200917
  Transmission Date: 20201103
  Serious: No
  Sender: FDA-Public Use
  Company Number: US-PFIZER INC-2020357632

PATIENT
  Sex: Female

DRUGS (1)
  1. PREMARIN [Suspect]
     Active Substance: ESTROGENS, CONJUGATED
     Indication: ATROPHIC VULVOVAGINITIS
     Dosage: EVERY OTHER DAY, ONE SET IN THE OUTSIDE, ANOTHER ON THE OUTSIDE + INSIDE
     Route: 067

REACTIONS (3)
  - Vulvovaginal burning sensation [Unknown]
  - Product use issue [Unknown]
  - Off label use [Unknown]
